FAERS Safety Report 6917731-1 (Version None)
Quarter: 2010Q3

REPORT INFORMATION
  Report Type: 
  Country: None (occurrence: None)
  Receive Date: 20100810
  Receipt Date: 20100630
  Transmission Date: 20110219
  Serious: No
  Sender: FDA-Public Use
  Company Number: US-TYCO HEALTHCARE/MALLINCKRODT-T201001556

PATIENT
  Sex: Female

DRUGS (1)
  1. PAMELOR [Suspect]
     Dosage: UNK

REACTIONS (6)
  - DRY SKIN [None]
  - HEART RATE IRREGULAR [None]
  - PALPITATIONS [None]
  - PARAESTHESIA [None]
  - RASH MACULAR [None]
  - SKIN DISCOLOURATION [None]
